FAERS Safety Report 6666827-0 (Version None)
Quarter: 2010Q2

REPORT INFORMATION
  Report Type: 
  Country: None (occurrence: None)
  Receive Date: 20100401
  Receipt Date: 20100401
  Transmission Date: 20101027
  Serious: No
  Sender: FDA-Public Use
  Company Number: None

PATIENT
  Age: 87 Year
  Sex: Male

DRUGS (1)
  1. CEPHALEXIN [Suspect]
     Indication: CELLULITIS
     Dosage: 500 MG TID PO
     Route: 048
     Dates: start: 20100321, end: 20100331

REACTIONS (1)
  - RASH [None]
